FAERS Safety Report 4986195-X (Version None)
Quarter: 2006Q2

REPORT INFORMATION
  Report Type: 
  Country: None (occurrence: None)
  Receive Date: 20060424
  Receipt Date: 20060407
  Transmission Date: 20061013
  Serious: Yes (Other)
  Sender: FDA-Public Use
  Company Number: TRP_0748_2006

PATIENT
  Age: 53 Year
  Sex: Female

DRUGS (4)
  1. RIBASPHERE/RIBAVIRIN/THREE RIVERS PHARMA/200 MG [Suspect]
     Indication: HEPATITIS C
     Dosage: DF UNK PO
     Route: 048
     Dates: start: 20060203
  2. PEG-INTRON [Suspect]
     Indication: HEPATITIS C
     Dosage: SF UNK SC
     Route: 058
     Dates: start: 20060203
  3. ADVAIR DISKUS 100/50 [Concomitant]
  4. CELEXA [Concomitant]

REACTIONS (4)
  - CELLULITIS [None]
  - CRYING [None]
  - DEPRESSION [None]
  - STAPHYLOCOCCAL INFECTION [None]
